FAERS Safety Report 5208324-5 (Version None)
Quarter: 2007Q1

REPORT INFORMATION
  Report Type: 
  Country: None (occurrence: None)
  Receive Date: 20070110
  Receipt Date: 20070110
  Transmission Date: 20070707
  Serious: Yes (Disabling)
  Sender: FDA-Public Use
  Company Number: None

PATIENT
  Age: 33 Year
  Sex: Female
  Weight: 88.3 kg

DRUGS (21)
  1. LINEZOLID [Suspect]
     Indication: STAPHYLOCOCCAL INFECTION
     Dosage: 600MG Q12HOURS IV
     Route: 042
  2. VALSARTAN [Concomitant]
  3. ZOSYN [Concomitant]
  4. TYLENOL [Concomitant]
  5. BUSPAR [Concomitant]
  6. CLONIDINE [Concomitant]
  7. FENTANYL TRANSDERMAL SYSTEM [Concomitant]
  8. FERROUS SULFATE TAB [Concomitant]
  9. EPOGEN [Concomitant]
  10. GABAPENTIN [Concomitant]
  11. TIZANIDINE HCL [Concomitant]
  12. LORAZEPAM [Concomitant]
  13. ALPRAZOLAM [Concomitant]
  14. INSULIN [Concomitant]
  15. NIFEDIPINE [Concomitant]
  16. NORTRIPTYLINE HCL [Concomitant]
  17. PROTONIX [Concomitant]
  18. TEMAZEPAM [Concomitant]
  19. POTASSIUM CHLORIDE [Concomitant]
  20. THYROID TAB [Concomitant]
  21. METOPROLOL TARTRATE [Concomitant]

REACTIONS (1)
  - ANAEMIA [None]
